FAERS Safety Report 4366619-1 (Version None)
Quarter: 2004Q2

REPORT INFORMATION
  Report Type: 
  Country: None (occurrence: None)
  Receive Date: 20040520
  Receipt Date: 20040505
  Transmission Date: 20050107
  Serious: Yes (Hospitalization)
  Sender: FDA-Public Use
  Company Number: 195770

PATIENT
  Age: 63 Year
  Sex: Female
  Weight: 74.8435 kg

DRUGS (2)
  1. AVONEX [Suspect]
     Indication: MULTIPLE SCLEROSIS
     Dosage: 30 MCG QW IM
     Route: 030
     Dates: start: 19990101
  2. ALLEGRA [Concomitant]

REACTIONS (17)
  - ANXIETY [None]
  - ASTHENIA [None]
  - BURSITIS [None]
  - CONFUSIONAL STATE [None]
  - CRYING [None]
  - DEPRESSED MOOD [None]
  - DYSARTHRIA [None]
  - FALL [None]
  - FATIGUE [None]
  - HYPERTENSION [None]
  - HYPOTHYROIDISM [None]
  - LOCALISED OSTEOARTHRITIS [None]
  - MEMORY IMPAIRMENT [None]
  - MENTAL IMPAIRMENT [None]
  - MUSCLE SPASMS [None]
  - URINARY INCONTINENCE [None]
  - WEIGHT DECREASED [None]
